FAERS Safety Report 13228738 (Version 1)
Quarter: 2017Q1

REPORT INFORMATION
  Report Type: Spontaneous
  Country: US (occurrence: US)
  Receive Date: 20170213
  Receipt Date: 20170213
  Transmission Date: 20170428
  Serious: No
  Sender: FDA-Public Use
  Company Number: US-ROCHE-1835705

PATIENT
  Sex: Female

DRUGS (1)
  1. XOLAIR [Suspect]
     Active Substance: OMALIZUMAB
     Indication: ASTHMA
     Dosage: TWO SHOTS IN ONE ARM AND ONE SHOT IN THE OTHER
     Route: 065

REACTIONS (2)
  - Lipoma [Not Recovered/Not Resolved]
  - Pain [Not Recovered/Not Resolved]
